FAERS Safety Report 6829639-0 (Version None)
Quarter: 2010Q3

REPORT INFORMATION
  Report Type: 
  Country: None (occurrence: None)
  Receive Date: 20100709
  Receipt Date: 20070426
  Transmission Date: 20110219
  Serious: No
  Sender: FDA-Public Use
  Company Number: US-PFIZER INC-2007017291

PATIENT
  Sex: Female

DRUGS (4)
  1. CHANTIX [Suspect]
     Indication: SMOKING CESSATION THERAPY
     Dates: start: 20070224
  2. ANTIHYPERTENSIVES [Concomitant]
     Indication: HYPERTENSION
  3. TYLENOL-500 [Concomitant]
  4. PIROXICAM [Concomitant]
     Dates: end: 20070201

REACTIONS (4)
  - DRY MOUTH [None]
  - FLATULENCE [None]
  - HEADACHE [None]
  - LETHARGY [None]
